FAERS Safety Report 9433600 (Version 1)
Quarter: 2013Q3

REPORT INFORMATION
  Report Type: Report from Study
  Country: FI (occurrence: FI)
  Receive Date: 20130731
  Receipt Date: 20130731
  Transmission Date: 20140515
  Serious: Yes (Other)
  Sender: FDA-Public Use
  Company Number: FI-009507513-1307FIN013128

PATIENT
  Age: 63 Year
  Sex: Male
  Weight: 82 kg

DRUGS (4)
  1. SIMVASTATIN [Suspect]
     Indication: ACUTE CORONARY SYNDROME
     Dosage: 40 MG, QD
     Route: 048
     Dates: start: 20070314
  2. SALAZOPYRIN [Concomitant]
     Dosage: UNK
     Route: 048
     Dates: start: 20110404
  3. ASPIRIN [Concomitant]
     Dosage: UNK
     Route: 048
     Dates: start: 20110404
  4. LOSATRIX [Concomitant]
     Dosage: TOTAL DAILY DOSE: 100/25 MG
     Route: 048
     Dates: start: 20110822

REACTIONS (1)
  - Pancreatic neoplasm [Not Recovered/Not Resolved]
